FAERS Safety Report 23233068 (Version 1)
Quarter: 2023Q4

REPORT INFORMATION
  Report Type: Spontaneous
  Country: US (occurrence: US)
  Receive Date: 20231128
  Receipt Date: 20231128
  Transmission Date: 20240109
  Serious: Yes (Hospitalization)
  Sender: FDA-Public Use
  Company Number: US-UCBSA-2023036616

PATIENT
  Sex: Male
  Weight: 72.2 kg

DRUGS (1)
  1. CIMZIA [Suspect]
     Active Substance: CERTOLIZUMAB PEGOL
     Indication: Crohn^s disease
     Dosage: 400 MILLIGRAM, EV 2 WEEKS(QOW)
     Route: 058
     Dates: start: 20220118

REACTIONS (5)
  - Hospitalisation [Unknown]
  - Illness [Unknown]
  - Intentional dose omission [Unknown]
  - Product availability issue [Unknown]
  - Therapy interrupted [Unknown]
